FAERS Safety Report 23865679 (Version 2)
Quarter: 2024Q2

REPORT INFORMATION
  Report Type: Spontaneous
  Country: US (occurrence: US)
  Receive Date: 20240517
  Receipt Date: 20240614
  Transmission Date: 20240716
  Serious: Yes (Other)
  Sender: FDA-Public Use
  Company Number: US-009507513-2405USA003715

PATIENT
  Age: 64 Year
  Sex: Male

DRUGS (1)
  1. KEYTRUDA [Suspect]
     Active Substance: PEMBROLIZUMAB
     Indication: B-cell lymphoma unclassifiable
     Dosage: 200 MILLIGRAM, Q3W

REACTIONS (3)
  - T-cell lymphoma [Recovered/Resolved]
  - Autoimmune colitis [Unknown]
  - Product use in unapproved indication [Unknown]
